FAERS Safety Report 25620857 (Version 1)
Quarter: 2025Q3

REPORT INFORMATION
  Report Type: Spontaneous
  Country: US (occurrence: US)
  Receive Date: 20250730
  Receipt Date: 20250730
  Transmission Date: 20251021
  Serious: Yes (Other)
  Sender: SUNOVION
  Company Number: US-SMPA-2025SPA009488

PATIENT

DRUGS (1)
  1. APTIOM [Suspect]
     Active Substance: ESLICARBAZEPINE ACETATE
     Indication: Sturge-Weber syndrome
     Route: 048

REACTIONS (3)
  - Limb injury [Unknown]
  - Nasopharyngitis [Unknown]
  - Product use in unapproved indication [Unknown]
